FAERS Safety Report 6522536-X (Version None)
Quarter: 2009Q4

REPORT INFORMATION
  Report Type: 
  Country: None (occurrence: None)
  Receive Date: 20091229
  Receipt Date: 20091229
  Transmission Date: 20100525
  Serious: Yes (Hospitalization)
  Sender: FDA-Public Use
  Company Number: None

PATIENT
  Sex: Female
  Weight: 92 kg

DRUGS (2)
  1. CISPLATIN [Suspect]
     Dosage: 120 MG
  2. ETOPOSIDE [Suspect]
     Dosage: 450 MG

REACTIONS (9)
  - ANAEMIA [None]
  - ASTHENIA [None]
  - DEHYDRATION [None]
  - HYPOGLYCAEMIA [None]
  - MENTAL STATUS CHANGES [None]
  - NEUTROPENIA [None]
  - OESOPHAGITIS [None]
  - ORTHOSTATIC HYPOTENSION [None]
  - THROMBOCYTOPENIA [None]
